FAERS Safety Report 13917041 (Version 2)
Quarter: 2017Q3

REPORT INFORMATION
  Report Type: Spontaneous
  Country: US (occurrence: US)
  Receive Date: 20170829
  Receipt Date: 20170905
  Transmission Date: 20171127
  Serious: Yes (Other)
  Sender: FDA-Public Use
  Company Number: PHHY2017US124468

PATIENT
  Age: 54 Year
  Sex: Female

DRUGS (1)
  1. GENTAMICIN. [Suspect]
     Active Substance: GENTAMICIN
     Indication: PROPHYLAXIS
     Route: 061

REACTIONS (4)
  - Catheter site pruritus [Unknown]
  - Dermatitis contact [Unknown]
  - Catheter site discolouration [Unknown]
  - Catheter site rash [Recovered/Resolved]
